FAERS Safety Report 9282274 (Version 3)
Quarter: 2013Q2

REPORT INFORMATION
  Report Type: Spontaneous
  Country: US (occurrence: US)
  Receive Date: 20130510
  Receipt Date: 20130620
  Transmission Date: 20140414
  Serious: Yes (Hospitalization, Other)
  Sender: FDA-Public Use
  Company Number: US-PFIZER INC-2013144403

PATIENT
  Age: 56 Year
  Sex: Female
  Weight: 80.27 kg

DRUGS (17)
  1. CHANTIX [Suspect]
     Indication: SMOKING CESSATION THERAPY
     Dosage: 0.5 MG, 1X/DAY
     Route: 048
     Dates: start: 20130329, end: 2013
  2. CHANTIX [Suspect]
     Dosage: 1 MG, 2X/DAY
     Route: 048
     Dates: start: 2013, end: 20130510
  3. DIPHENHYDRAMINE [Concomitant]
     Indication: DYSTONIA
     Dosage: UNK
  4. ALPRAZOLAM [Concomitant]
     Dosage: UNK
  5. SIMVASTATIN [Concomitant]
     Indication: BLOOD CHOLESTEROL INCREASED
     Dosage: UNK
  6. LEVOTHYROXINE [Concomitant]
     Indication: HYPOTHYROIDISM
     Dosage: UNK
  7. MAPAP [Concomitant]
     Indication: FIBROMYALGIA
     Dosage: UNK
  8. MAPAP [Concomitant]
     Indication: MYOFASCIAL PAIN SYNDROME
  9. ASPIRIN [Concomitant]
     Dosage: UNK
  10. METFORMIN [Concomitant]
     Indication: DIABETES MELLITUS
     Dosage: 500 MG, 2X/DAY
  11. CALCIUM [Concomitant]
     Dosage: UNK
  12. VITAMIN D [Concomitant]
     Dosage: UNK
  13. IRON [Concomitant]
     Dosage: UNK
  14. SUPER B COMPLEX [Concomitant]
     Dosage: UNK
  15. COMBIVENT [Concomitant]
     Indication: EMPHYSEMA
     Dosage: UNK
  16. BAG BALM [Concomitant]
     Indication: PSORIASIS
     Dosage: UNK
  17. TRAMADOL [Concomitant]
     Indication: NEURALGIA
     Dosage: UNK

REACTIONS (7)
  - Skin reaction [Unknown]
  - Psoriasis [Unknown]
  - Rash [Not Recovered/Not Resolved]
  - Swelling [Not Recovered/Not Resolved]
  - Erythema [Not Recovered/Not Resolved]
  - Skin exfoliation [Not Recovered/Not Resolved]
  - Gait disturbance [Unknown]
